FAERS Safety Report 5614645-4 (Version None)
Quarter: 2008Q1

REPORT INFORMATION
  Report Type: 
  Country: None (occurrence: None)
  Receive Date: 20080131
  Receipt Date: 20080118
  Transmission Date: 20080703
  Serious: Yes (Other)
  Sender: FDA-Public Use
  Company Number: 2007S1013667

PATIENT
  Age: 52 Year
  Sex: Male
  Weight: 63.5036 kg

DRUGS (2)
  1. PHENYTOIN SODIUM [Suspect]
     Indication: EPILEPSY
     Dosage: 500 MG;DAILY;ORAL; 400 MG;DAILY;ORAL
     Route: 048
     Dates: start: 19980101, end: 20071217
  2. PHENYTOIN SODIUM [Suspect]
     Indication: EPILEPSY
     Dosage: 500 MG;DAILY;ORAL; 400 MG;DAILY;ORAL
     Route: 048
     Dates: start: 20071217

REACTIONS (8)
  - ANTICONVULSANT DRUG LEVEL ABOVE THERAPEUTIC [None]
  - BALANCE DISORDER [None]
  - DIZZINESS [None]
  - FATIGUE [None]
  - MEMORY IMPAIRMENT [None]
  - NAUSEA [None]
  - VERTIGO [None]
  - VISION BLURRED [None]
